FAERS Safety Report 12332864 (Version 2)
Quarter: 2016Q2

REPORT INFORMATION
  Report Type: Spontaneous
  Country: US (occurrence: US)
  Receive Date: 20160504
  Receipt Date: 20160512
  Transmission Date: 20160815
  Serious: Yes (Other)
  Sender: FDA-Public Use
  Company Number: US-GILEAD-2016-0211559

PATIENT
  Sex: Male

DRUGS (3)
  1. TRUVADA [Suspect]
     Active Substance: EMTRICITABINE\TENOFOVIR DISOPROXIL FUMARATE
     Indication: PROPHYLAXIS AGAINST HIV INFECTION
     Dosage: UNK
     Route: 065
     Dates: start: 2016
  2. PHYSOSTIGMINE [Suspect]
     Active Substance: PHYSOSTIGMINE
     Indication: VISION BLURRED
  3. PHYSOSTIGMINE [Suspect]
     Active Substance: PHYSOSTIGMINE
     Indication: EYELID DISORDER
     Dosage: UNK GTT, UNK
     Route: 047

REACTIONS (1)
  - Myasthenia gravis [Unknown]

NARRATIVE: CASE EVENT DATE: 2016
